FAERS Safety Report 10659819 (Version 1)
Quarter: 2014Q4

REPORT INFORMATION
  Report Type: Spontaneous
  Country: US (occurrence: US)
  Receive Date: 20141217
  Receipt Date: 20141217
  Transmission Date: 20150529
  Serious: No
  Sender: FDA-Public Use
  Company Number: US-SA-2013SA128033

PATIENT
  Sex: Male

DRUGS (4)
  1. THYROXIN [Concomitant]
     Active Substance: LEVOTHYROXINE
  2. IODINE (123 I) [Concomitant]
     Dosage: WEDNESDAY MORNING
  3. THYROGEN [Suspect]
     Active Substance: THYROTROPIN ALFA
     Indication: DIAGNOSTIC PROCEDURE
     Dosage: MONDAY AND TUESDAY
     Route: 065
  4. IODINE (131 I) [Concomitant]
     Active Substance: SODIUM IODIDE I-131
     Dosage: LATE WEDNESDAY

REACTIONS (2)
  - Thyroiditis [Unknown]
  - Neck pain [Unknown]
